FAERS Safety Report 12215788 (Version 1)
Quarter: 2016Q1

REPORT INFORMATION
  Report Type: Report from Study
  Country: US (occurrence: US)
  Receive Date: 20160328
  Receipt Date: 20160328
  Transmission Date: 20160526
  Serious: Yes (Other)
  Sender: FDA-Public Use
  Company Number: US-GILEAD-2016-0204828

PATIENT
  Age: 58 Year
  Sex: Female

DRUGS (1)
  1. EMTRICITABINE/TENOFOVIR DISOPROXIL FUMARATE [Suspect]
     Active Substance: EMTRICITABINE\TENOFOVIR DISOPROXIL
     Indication: LIVER TRANSPLANT
     Dosage: 500 MG, UNK
     Route: 048
     Dates: start: 20150810

REACTIONS (2)
  - Off label use [Unknown]
  - Liver transplant [Unknown]
